FAERS Safety Report 10509430 (Version 3)
Quarter: 2017Q3

REPORT INFORMATION
  Report Type: Spontaneous
  Country: JP (occurrence: JP)
  Receive Date: 20141009
  Receipt Date: 20170714
  Transmission Date: 20171127
  Serious: Yes (Death, Life-Threatening, Other)
  Sender: FDA-Public Use
  Company Number: JP-JNJFOC-20141001731

PATIENT
  Age: 65 Year
  Sex: Male
  Weight: 55 kg

DRUGS (17)
  1. XEPLION [Suspect]
     Active Substance: PALIPERIDONE PALMITATE
     Indication: SCHIZOPHRENIA
     Route: 030
     Dates: start: 20140703, end: 20140731
  2. ABILIFY [Suspect]
     Active Substance: ARIPIPRAZOLE
     Indication: SCHIZOPHRENIA
     Route: 048
     Dates: start: 20110920, end: 20121205
  3. ABILIFY [Suspect]
     Active Substance: ARIPIPRAZOLE
     Indication: SCHIZOPHRENIA
     Route: 048
     Dates: start: 20140706, end: 20140916
  4. XEPLION [Suspect]
     Active Substance: PALIPERIDONE PALMITATE
     Indication: SCHIZOPHRENIA
     Route: 030
     Dates: start: 2014, end: 2014
  5. ABILIFY [Suspect]
     Active Substance: ARIPIPRAZOLE
     Indication: SCHIZOPHRENIA
     Route: 048
     Dates: start: 20140626, end: 20140702
  6. INVEGA [Concomitant]
     Active Substance: PALIPERIDONE
     Indication: HALLUCINATION, AUDITORY
     Route: 048
     Dates: start: 20140306, end: 20140703
  7. SEDIEL [Concomitant]
     Active Substance: TANDOSPIRONE
     Indication: SOMATIC SYMPTOM DISORDER
     Route: 048
     Dates: start: 20140501, end: 20140820
  8. ABILIFY [Suspect]
     Active Substance: ARIPIPRAZOLE
     Indication: SCHIZOPHRENIA
     Route: 048
     Dates: start: 20140703, end: 20140705
  9. INVEGA [Concomitant]
     Active Substance: PALIPERIDONE
     Indication: HALLUCINATION, AUDITORY
     Route: 048
     Dates: start: 20140206, end: 20140305
  10. IRRIBOW [Concomitant]
     Active Substance: RAMOSETRON HYDROCHLORIDE
     Indication: ABDOMINAL SYMPTOM
     Route: 048
     Dates: start: 20130822, end: 20140717
  11. INVEGA [Concomitant]
     Active Substance: PALIPERIDONE
     Indication: SCHIZOPHRENIA
     Route: 048
     Dates: start: 20140206, end: 20140305
  12. ABILIFY [Suspect]
     Active Substance: ARIPIPRAZOLE
     Indication: SCHIZOPHRENIA
     Route: 048
     Dates: start: 20121206, end: 20140402
  13. INVEGA [Concomitant]
     Active Substance: PALIPERIDONE
     Indication: SCHIZOPHRENIA
     Route: 048
     Dates: start: 20140306, end: 20140703
  14. FLUNITRAZEPAM [Concomitant]
     Active Substance: FLUNITRAZEPAM
     Indication: INSOMNIA
     Route: 065
     Dates: start: 20110920, end: 20140714
  15. LONASEN [Concomitant]
     Active Substance: BLONANSERIN
     Indication: SCHIZOPHRENIA
     Route: 048
     Dates: start: 20130920, end: 20140710
  16. ABILIFY [Suspect]
     Active Substance: ARIPIPRAZOLE
     Indication: SCHIZOPHRENIA
     Route: 048
     Dates: start: 20140403, end: 20140625
  17. DIMETICONE [Concomitant]
     Active Substance: DIMETHICONE
     Indication: ABDOMINAL SYMPTOM
     Route: 048
     Dates: start: 20090407, end: 20140717

REACTIONS (11)
  - Cachexia [Unknown]
  - Hypothermia [Unknown]
  - Cerebral atrophy [Fatal]
  - Altered state of consciousness [Fatal]
  - Hypotension [Unknown]
  - Hyponatraemia [Fatal]
  - Muscular weakness [Unknown]
  - Multiple organ dysfunction syndrome [Fatal]
  - Platelet count decreased [Unknown]
  - Gait inability [Unknown]
  - Lymphocyte count decreased [Unknown]

NARRATIVE: CASE EVENT DATE: 20140717
